FAERS Safety Report 14122462 (Version 1)
Quarter: 2017Q4

REPORT INFORMATION
  Report Type: Not Available
  Country: US (occurrence: US)
  Receive Date: 20171024
  Receipt Date: 20171024
  Transmission Date: 20180321
  Serious: No
  Sender: FDA-Public Use
  Company Number: US-ANIPHARMA-2017-US-012061

PATIENT
  Age: 83 Year
  Sex: Male
  Weight: 70.76 kg

DRUGS (12)
  1. XTANDI [Suspect]
     Active Substance: ENZALUTAMIDE
     Dates: start: 20160429, end: 20170801
  2. CARVEDILOL. [Concomitant]
     Active Substance: CARVEDILOL
     Dosage: 12.5 MG TWICE DAILY
  3. TEA [Concomitant]
     Active Substance: TEA LEAF
  4. NILUTAMIDE TABLETS [Suspect]
     Active Substance: NILUTAMIDE
     Dosage: 150 MG ONCE DAILY
     Route: 048
     Dates: start: 20080821
  5. VITAMIN C [Concomitant]
     Active Substance: ASCORBIC ACID
  6. GLUCOSAMINE/MSM [Concomitant]
  7. LOSARTAN. [Concomitant]
     Active Substance: LOSARTAN
     Dosage: 12.5 MG DAILY
  8. VITAMIN B12 [Concomitant]
     Active Substance: CYANOCOBALAMIN
  9. LYCOPENE [Concomitant]
     Active Substance: LYCOPENE
  10. LUPRON [Suspect]
     Active Substance: LEUPROLIDE ACETATE
     Route: 030
     Dates: start: 201407
  11. FINASTERIDE. [Concomitant]
     Active Substance: FINASTERIDE
  12. ATORVASTATIN [Concomitant]
     Active Substance: ATORVASTATIN
     Dosage: 10 MG DAILY

REACTIONS (3)
  - Bone scan abnormal [Unknown]
  - Prostatic specific antigen increased [Unknown]
  - Delayed dark adaptation [Not Recovered/Not Resolved]

NARRATIVE: CASE EVENT DATE: 2008
